FAERS Safety Report 6572873-8 (Version None)
Quarter: 2010Q1

REPORT INFORMATION
  Report Type: 
  Country: None (occurrence: None)
  Receive Date: 20100207
  Receipt Date: 20100201
  Transmission Date: 20100710
  Serious: Yes (Other)
  Sender: FDA-Public Use
  Company Number: US-ELI_LILLY_AND_COMPANY-US200912003505

PATIENT
  Age: 49 Year
  Sex: Male

DRUGS (2)
  1. HUMALOG [Suspect]
     Indication: DIABETES MELLITUS
  2. HUMALOG [Suspect]
     Dosage: UNK, UNK
     Dates: start: 20090101

REACTIONS (3)
  - BLOOD GLUCOSE INCREASED [None]
  - DEVICE MISUSE [None]
  - RENAL FAILURE [None]
